FAERS Safety Report 5506116-0 (Version None)
Quarter: 2007Q4

REPORT INFORMATION
  Report Type: 
  Country: None (occurrence: None)
  Receive Date: 20071105
  Receipt Date: 20071030
  Transmission Date: 20080405
  Serious: Yes (Other)
  Sender: FDA-Public Use
  Company Number: GB-BRISTOL-MYERS SQUIBB COMPANY-13950332

PATIENT
  Age: 59 Year
  Sex: Male

DRUGS (9)
  1. LISINOPRIL [Suspect]
     Route: 048
     Dates: start: 19960101
  2. METFORMIN HCL [Suspect]
     Route: 048
     Dates: start: 19960101
  3. ACOMPLIA [Suspect]
     Indication: WEIGHT DECREASED
     Dates: start: 20070116
  4. ASPIRIN [Concomitant]
  5. FRUSEMIDE [Concomitant]
  6. GLICLAZIDE [Concomitant]
     Indication: DIABETES MELLITUS
  7. PIOGLITAZONE HCL [Concomitant]
     Indication: DIABETES MELLITUS
  8. SIMVASTATIN [Concomitant]
     Indication: HYPERCHOLESTEROLAEMIA
  9. NON-CURRENT DRUGS [Concomitant]

REACTIONS (1)
  - RENAL IMPAIRMENT [None]
